FAERS Safety Report 7052853-9 (Version None)
Quarter: 2010Q4

REPORT INFORMATION
  Report Type: 
  Country: None (occurrence: None)
  Receive Date: 20101019
  Receipt Date: 20101006
  Transmission Date: 20110411
  Serious: Yes (Life-Threatening, Hospitalization, Other)
  Sender: FDA-Public Use
  Company Number: DE-MYLANLABS-2009S1003657

PATIENT
  Age: 79 Year
  Sex: Male
  Weight: 58 kg

DRUGS (11)
  1. TORASEMIDE [Suspect]
     Indication: HYPERTENSION
     Route: 048
     Dates: end: 20080620
  2. RAMIPRIL [Suspect]
     Indication: HYPERTENSION
     Route: 048
     Dates: end: 20080620
  3. ALDACTONE [Suspect]
     Indication: CARDIAC FAILURE
     Route: 048
     Dates: end: 20080601
  4. XIPAMIDE [Suspect]
     Indication: HYPERTENSION
     Route: 048
     Dates: end: 20080620
  5. ALLOPURINOL [Concomitant]
     Indication: HYPERURICAEMIA
     Route: 048
     Dates: start: 20000101, end: 20080620
  6. METAMIZOL NATRIUM [Concomitant]
     Indication: PAIN
     Route: 048
     Dates: end: 20080620
  7. METOCLOPRAMIDE [Concomitant]
     Indication: GASTROINTESTINAL MOTILITY DISORDER
     Route: 048
     Dates: start: 20080618, end: 20080620
  8. PANTOPRAZOLE SODIUM [Concomitant]
     Indication: DUODENAL ULCER
     Route: 048
     Dates: start: 20080301, end: 20080620
  9. RISPERIDONE [Concomitant]
     Indication: DEMENTIA
     Route: 048
     Dates: start: 20050101
  10. SIMVASTATIN [Concomitant]
     Indication: CORONARY ARTERY DISEASE
     Route: 048
     Dates: start: 20030101, end: 20080620
  11. FALITHROM [Concomitant]
     Indication: CORONARY ARTERY DISEASE
     Route: 048
     Dates: start: 20080620

REACTIONS (2)
  - ELECTROLYTE DEPLETION [None]
  - SYNCOPE [None]
